FAERS Safety Report 11611675 (Version 3)
Quarter: 2016Q1

REPORT INFORMATION
  Report Type: Report from Study
  Country: VE (occurrence: VE)
  Receive Date: 20151008
  Receipt Date: 20160202
  Transmission Date: 20160525
  Serious: No
  Sender: FDA-Public Use
  Company Number: PHHY2015VE072985

PATIENT
  Age: 60 Year
  Sex: Female

DRUGS (4)
  1. TYKERB [Concomitant]
     Active Substance: LAPATINIB DITOSYLATE
     Indication: BREAST CANCER
     Dosage: 250 MG/5 QD
     Route: 065
  2. ANASTROL [Concomitant]
     Indication: BREAST CANCER
     Dosage: 1 MG, QD
     Route: 065
  3. FEMARA [Suspect]
     Active Substance: LETROZOLE
     Indication: PRODUCT USED FOR UNKNOWN INDICATION
     Dosage: UNK
     Route: 065
     Dates: end: 201503
  4. AFINITOR [Suspect]
     Active Substance: EVEROLIMUS
     Indication: BREAST CANCER
     Dosage: 10 MG, QD
     Route: 048
     Dates: start: 201502, end: 201503

REACTIONS (13)
  - Stomatitis [Recovering/Resolving]
  - Gingival bleeding [Unknown]
  - Gingival disorder [Unknown]
  - Malaise [Recovered/Resolved]
  - Speech disorder [Unknown]
  - Mouth ulceration [Unknown]
  - Weight decreased [Unknown]
  - Rash [Recovered/Resolved]
  - Tongue ulceration [Recovered/Resolved]
  - Dysphagia [Recovered/Resolved]
  - Tooth fracture [Unknown]
  - Mouth injury [Unknown]
  - Feeding disorder [Unknown]

NARRATIVE: CASE EVENT DATE: 20150316
